FAERS Safety Report 21070896 (Version 3)
Quarter: 2022Q3

REPORT INFORMATION
  Report Type: Spontaneous
  Country: US (occurrence: None)
  Receive Date: 20220712
  Receipt Date: 20220720
  Transmission Date: 20221027
  Serious: Yes (Hospitalization, Congenital Anomaly, Other)
  Sender: FDA-Public Use
  Company Number: US-ROCHE-3136142

PATIENT
  Age: 8 Year
  Sex: Female
  Weight: 35 kg

DRUGS (3)
  1. ACTEMRA [Suspect]
     Active Substance: TOCILIZUMAB
     Indication: Still^s disease
     Dosage: STRENGTH:162MG/0.9ML
     Route: 058
     Dates: start: 20220524
  2. ACTEMRA [Suspect]
     Active Substance: TOCILIZUMAB
  3. JARDIANCE [Concomitant]
     Active Substance: EMPAGLIFLOZIN
     Route: 048
     Dates: start: 2021

REACTIONS (3)
  - Vomiting [Recovered/Resolved]
  - Glycogen storage disorder [Not Recovered/Not Resolved]
  - Hypoglycaemia [Recovered/Resolved]

NARRATIVE: CASE EVENT DATE: 20220630
